FAERS Safety Report 8280575-5 (Version None)
Quarter: 2012Q2

REPORT INFORMATION
  Report Type: 
  Country: None (occurrence: None)
  Receive Date: 20120412
  Receipt Date: 20120220
  Transmission Date: 20120825
  Serious: No
  Sender: FDA-Public Use
  Company Number: US-ASTRAZENECA-2012SE11810

PATIENT
  Age: 39 Year
  Sex: Male
  Weight: 61.2 kg

DRUGS (1)
  1. NEXIUM [Suspect]
     Indication: GASTROOESOPHAGEAL REFLUX DISEASE
     Route: 048
     Dates: start: 20070401, end: 20111104

REACTIONS (8)
  - PSORIASIS [None]
  - FEELING ABNORMAL [None]
  - DIARRHOEA [None]
  - PAIN IN EXTREMITY [None]
  - DYSSTASIA [None]
  - HEADACHE [None]
  - ANXIETY [None]
  - PHOTOPSIA [None]
